FAERS Safety Report 4419903-7 (Version None)
Quarter: 2004Q2

REPORT INFORMATION
  Report Type: 
  Country: None (occurrence: None)
  Receive Date: 20040622
  Receipt Date: 20030826
  Transmission Date: 20050107
  Serious: Yes (Death, Hospitalization)
  Sender: FDA-Public Use
  Company Number: 345585

PATIENT
  Age: 74 Year
  Sex: Male
  Weight: 90 kg

DRUGS (5)
  1. XELODA [Suspect]
     Indication: CARCINOID TUMOUR OF THE CAECUM
     Dosage: 2000 MG 1 PER 12 HOUR ORAL
     Route: 048
     Dates: start: 20030811, end: 20030815
  2. LOPRESSOR [Concomitant]
  3. PLAVIX [Concomitant]
  4. LIPITOR [Concomitant]
  5. CELEBREX [Concomitant]

REACTIONS (5)
  - CARDIAC FAILURE CONGESTIVE [None]
  - DEEP VEIN THROMBOSIS [None]
  - DYSPNOEA [None]
  - POLYURIA [None]
  - PULMONARY EMBOLISM [None]
